FAERS Safety Report 24271301 (Version 1)
Quarter: 2024Q3

REPORT INFORMATION
  Report Type: Spontaneous
  Country: US (occurrence: US)
  Receive Date: 20240901
  Receipt Date: 20240901
  Transmission Date: 20241016
  Serious: No
  Sender: CSL Plasma
  Company Number: US-CSLP-26301849039-V13333795-32

PATIENT
  Age: 30 Year
  Sex: Male

DRUGS (2)
  1. ANTICOAGULANT SODIUM CITRATE [Suspect]
     Active Substance: SODIUM CITRATE
     Indication: Anticoagulant therapy
     Route: 050
     Dates: start: 20240809, end: 20240809
  2. STELARA (Interleukin inhibitors) [Concomitant]
     Indication: Colitis ulcerative

REACTIONS (7)
  - Hyperhidrosis [Recovered/Resolved]
  - Hypoaesthesia [Recovered/Resolved]
  - Dysgeusia [Recovered/Resolved]
  - Muscle spasms [Recovered/Resolved]
  - Feeling hot [Recovered/Resolved]
  - Pallor [Recovered/Resolved]
  - Paraesthesia [Recovered/Resolved]

NARRATIVE: CASE EVENT DATE: 20240809
